FAERS Safety Report 19472324 (Version 1)
Quarter: 2021Q2

REPORT INFORMATION
  Report Type: Spontaneous
  Country: US (occurrence: US)
  Receive Date: 20210629
  Receipt Date: 20210629
  Transmission Date: 20210717
  Serious: No
  Sender: FDA-Public Use
  Company Number: US-CIPLA LTD.-2021US02992

PATIENT

DRUGS (1)
  1. TESTOSTERONE. [Suspect]
     Active Substance: TESTOSTERONE
     Indication: HORMONE REPLACEMENT THERAPY
     Dosage: UNK, INJECTED FIRST SHOT
     Route: 030
     Dates: start: 20210411, end: 20210411

REACTIONS (4)
  - Fear of injection [Unknown]
  - Injection site pain [Recovered/Resolved]
  - Injection site inflammation [Recovered/Resolved]
  - Injection site swelling [Recovered/Resolved]

NARRATIVE: CASE EVENT DATE: 202104
